FAERS Safety Report 8134433-7 (Version None)
Quarter: 2012Q1

REPORT INFORMATION
  Report Type: 
  Country: None (occurrence: None)
  Receive Date: 20120103
  Receipt Date: 20111108
  Transmission Date: 20120608
  Serious: No
  Sender: FDA-Public Use
  Company Number: AE-2011-003226

PATIENT
  Age: 62 Year
  Sex: Male
  Weight: 109.3169 kg

DRUGS (10)
  1. INCIVEK [Suspect]
     Dosage: 2250 MG (750 MG, 1 IN 8 HR), ORAL
     Route: 048
     Dates: start: 20110906
  2. VITAMIN (VITAMINS) [Concomitant]
  3. FISH OIL (FISH OIL) [Concomitant]
  4. LISINOPRIL WITH HYDROCHLOROTHIAZIDE (PIRINZIDE) [Concomitant]
  5. GLIMEPIRIDE [Concomitant]
  6. ASPIRIN [Concomitant]
  7. RIBAVIRIN [Concomitant]
  8. PEGASYS [Concomitant]
  9. METFORMIN HCL [Concomitant]
  10. NADOLOL [Concomitant]

REACTIONS (4)
  - MUSCULAR WEAKNESS [None]
  - BONE PAIN [None]
  - BURNING SENSATION [None]
  - WEIGHT DECREASED [None]
